FAERS Safety Report 10505862 (Version 2)
Quarter: 2015Q4

REPORT INFORMATION
  Report Type: Spontaneous
  Country: US (occurrence: US)
  Receive Date: 20141008
  Receipt Date: 20151005
  Transmission Date: 20160304
  Serious: No
  Sender: FDA-Public Use
  Company Number: US-SA-2014SA121376

PATIENT
  Age: 67 Year
  Sex: Female
  Weight: 73.93 kg

DRUGS (1)
  1. ARAVA [Suspect]
     Active Substance: LEFLUNOMIDE
     Indication: RHEUMATOID ARTHRITIS
     Route: 065
     Dates: start: 20140529, end: 20140714

REACTIONS (2)
  - Wrong technique in product usage process [Unknown]
  - Gingival blister [Recovering/Resolving]

NARRATIVE: CASE EVENT DATE: 201406
